FAERS Safety Report 8530709-X (Version None)
Quarter: 2012Q3

REPORT INFORMATION
  Report Type: 
  Country: None (occurrence: None)
  Receive Date: 20120723
  Receipt Date: 20120718
  Transmission Date: 20120928
  Serious: Yes (Life-Threatening, Hospitalization)
  Sender: FDA-Public Use
  Company Number: US-ASTRAZENECA-2011SE08224

PATIENT
  Age: 55 Year
  Sex: Female

DRUGS (2)
  1. SEROQUEL XR [Suspect]
     Route: 048
  2. SEROQUEL XR [Suspect]
     Route: 048

REACTIONS (13)
  - ACUTE RESPIRATORY DISTRESS SYNDROME [None]
  - FLASHBACK [None]
  - AGITATION [None]
  - SOMNOLENCE [None]
  - PANIC ATTACK [None]
  - PNEUMONIA [None]
  - CEREBROVASCULAR ACCIDENT [None]
  - PULMONARY EMBOLISM [None]
  - COMA [None]
  - SEPTIC SHOCK [None]
  - FEELING ABNORMAL [None]
  - SEPSIS [None]
  - AMNESIA [None]
